FAERS Safety Report 17184043 (Version 1)
Quarter: 2019Q4

REPORT INFORMATION
  Report Type: Report from Study
  Country: GB (occurrence: GB)
  Receive Date: 20191220
  Receipt Date: 20191220
  Transmission Date: 20200122
  Serious: Yes (Hospitalization)
  Sender: FDA-Public Use
  Company Number: GB-EMD SERONO-9135747

PATIENT
  Sex: Female

DRUGS (2)
  1. MAVENCLAD [Suspect]
     Active Substance: CLADRIBINE
     Dosage: SECOND YEAR THERAPY: THE PATIENT TOOK DAY 5 DOSE ON DAY 7.
     Route: 048
  2. MAVENCLAD [Suspect]
     Active Substance: CLADRIBINE
     Indication: MULTIPLE SCLEROSIS
     Dosage: FIRST YEAR THERAPY: TWO TABLETS (EACH OF 10 MG) ON DAYS 1 TO 5 AS DIRECTED
     Route: 048
     Dates: start: 20181015

REACTIONS (2)
  - Kidney infection [Recovering/Resolving]
  - Urinary tract infection [Recovering/Resolving]
